FAERS Safety Report 6414016-7 (Version None)
Quarter: 2009Q4

REPORT INFORMATION
  Report Type: 
  Country: None (occurrence: None)
  Receive Date: 20091026
  Receipt Date: 20091014
  Transmission Date: 20100525
  Serious: Yes (Hospitalization, Other)
  Sender: FDA-Public Use
  Company Number: PHHY2009JP42269

PATIENT
  Sex: Male
  Weight: 27 kg

DRUGS (5)
  1. SANDIMMUNE [Suspect]
     Indication: COLITIS ULCERATIVE
     Dosage: 90 MG/DAY
     Route: 042
     Dates: start: 20080906, end: 20081117
  2. PREDONINE [Suspect]
     Indication: COLITIS ULCERATIVE
     Dosage: 30 MG/DAY
     Route: 042
     Dates: start: 20080901
  3. METHYLPREDNISOLONE 4MG TAB [Concomitant]
     Indication: COLITIS ULCERATIVE
     Dosage: 0.15 MG/KG/HR
  4. INFLIXIMAB [Concomitant]
     Indication: COLITIS ULCERATIVE
     Dosage: 5 MG/KG, UNK
  5. BLOOD AND RELATED PRODUCTS [Concomitant]
     Indication: COLITIS ULCERATIVE

REACTIONS (12)
  - COLECTOMY TOTAL [None]
  - COLITIS ULCERATIVE [None]
  - DISEASE PROGRESSION [None]
  - GRAND MAL CONVULSION [None]
  - HYPERTENSION [None]
  - ILEOCOLOSTOMY [None]
  - INTESTINAL ANASTOMOSIS [None]
  - LOSS OF CONSCIOUSNESS [None]
  - RESECTION OF RECTUM [None]
  - RESTLESSNESS [None]
  - REVERSIBLE POSTERIOR LEUKOENCEPHALOPATHY SYNDROME [None]
  - VOMITING [None]
